FAERS Safety Report 23251456 (Version 2)
Quarter: 2024Q1

REPORT INFORMATION
  Report Type: Report from Study
  Country: US (occurrence: US)
  Receive Date: 20231201
  Receipt Date: 20240314
  Transmission Date: 20240409
  Serious: Yes (Other)
  Sender: FDA-Public Use
  Company Number: US-ARGENX-2023-ARGX-US003585

PATIENT

DRUGS (1)
  1. VYVGART [Suspect]
     Active Substance: EFGARTIGIMOD ALFA-FCAB
     Indication: Product used for unknown indication
     Dosage: UNK
     Route: 042

REACTIONS (9)
  - Choking [Unknown]
  - Dementia [Unknown]
  - Diarrhoea [Unknown]
  - Muscle spasms [Unknown]
  - Gait disturbance [Unknown]
  - Muscle twitching [Unknown]
  - Dyspnoea [Unknown]
  - Fatigue [Unknown]
  - Dehydration [Unknown]
